FAERS Safety Report 5674930-7 (Version None)
Quarter: 2008Q1

REPORT INFORMATION
  Report Type: 
  Country: None (occurrence: None)
  Receive Date: 20080320
  Receipt Date: 20080312
  Transmission Date: 20080703
  Serious: Yes (Hospitalization)
  Sender: FDA-Public Use
  Company Number: US-ELI_LILLY_AND_COMPANY-US200803003197

PATIENT
  Sex: Male

DRUGS (10)
  1. BYETTA [Suspect]
     Dosage: 5 UG, 2/D
     Route: 058
     Dates: start: 20060101, end: 20060101
  2. BYETTA [Suspect]
     Dosage: 10 UG, 2/D
     Route: 058
     Dates: start: 20060101
  3. INSULIN [Concomitant]
     Dosage: 20 U, 2/D
     Route: 058
  4. AMARYL [Concomitant]
     Dosage: 4 MG, 2/D
     Route: 048
  5. GLUCOPHAGE XR [Concomitant]
     Dosage: 1000 MG, 2/D
     Route: 048
  6. CELEBREX [Concomitant]
     Indication: INFLAMMATION
     Dates: end: 20071201
  7. ASPIRIN [Concomitant]
     Dosage: 325 MG, DAILY (1/D)
     Route: 048
  8. TOPROL [Concomitant]
     Indication: HEART RATE INCREASED
     Route: 048
  9. CHOLESTEROL- AND TRIGLYCERIDE REDUCERS [Concomitant]
     Dosage: UNK, DAILY (1/D)
     Route: 048
  10. ANTIHYPERTENSIVES [Concomitant]
     Route: 048

REACTIONS (12)
  - ARTHRALGIA [None]
  - ARTHRITIS [None]
  - ARTHROPOD BITE [None]
  - CARPAL TUNNEL SYNDROME [None]
  - CELLULITIS [None]
  - EXOSTOSIS [None]
  - INJECTION SITE HAEMORRHAGE [None]
  - INTERVERTEBRAL DISC PROTRUSION [None]
  - PAIN IN EXTREMITY [None]
  - SKIN DISCOLOURATION [None]
  - SKIN EXFOLIATION [None]
  - VISUAL ACUITY REDUCED [None]
